FAERS Safety Report 19298512 (Version 1)
Quarter: 2021Q2

REPORT INFORMATION
  Report Type: Spontaneous
  Country: US (occurrence: US)
  Receive Date: 20210524
  Receipt Date: 20210524
  Transmission Date: 20210717
  Serious: No
  Sender: FDA-Public Use
  Company Number: None

PATIENT
  Age: 57 Year
  Sex: Male
  Weight: 73 kg

DRUGS (1)
  1. SUCCINYLCHOLINE CHLORIDE. [Suspect]
     Active Substance: SUCCINYLCHOLINE CHLORIDE
     Route: 042
     Dates: start: 20210423, end: 20210423

REACTIONS (4)
  - Apnoea [None]
  - Pseudocholinesterase deficiency [None]
  - Post procedural complication [None]
  - Paralysis [None]

NARRATIVE: CASE EVENT DATE: 20210423
